FAERS Safety Report 5669475-4 (Version None)
Quarter: 2008Q1

REPORT INFORMATION
  Report Type: 
  Country: None (occurrence: None)
  Receive Date: 20080312
  Receipt Date: 20080312
  Transmission Date: 20080703
  Serious: Yes (Life-Threatening, Hospitalization)
  Sender: FDA-Public Use
  Company Number: None

PATIENT
  Age: 86 Year
  Sex: Female
  Weight: 79.3795 kg

DRUGS (7)
  1. GEMFIBROZIL [Suspect]
     Indication: HYPERCHOLESTEROLAEMIA
     Dosage: 600 BID PO
     Route: 048
  2. SIMVASTATIN [Suspect]
     Indication: HYPERCHOLESTEROLAEMIA
     Dosage: 40 DAILY PO
     Route: 048
  3. ASPIRIN [Concomitant]
  4. DILTIAZEM [Concomitant]
  5. QUNIPRIL [Concomitant]
  6. RISPERDAL [Concomitant]
  7. DOXAZOSIN MESYLATE [Concomitant]

REACTIONS (1)
  - RHABDOMYOLYSIS [None]
